FAERS Safety Report 10239593 (Version 8)
Quarter: 2015Q2

REPORT INFORMATION
  Report Type: Spontaneous
  Country: US (occurrence: US)
  Receive Date: 20140616
  Receipt Date: 20150505
  Transmission Date: 20150821
  Serious: Yes (Disabling)
  Sender: FDA-Public Use
  Company Number: US-009507513-1406USA007821

PATIENT
  Sex: Male
  Weight: 71.2 kg

DRUGS (2)
  1. PROPECIA [Suspect]
     Active Substance: FINASTERIDE
     Indication: ANDROGENETIC ALOPECIA
  2. PROPECIA [Suspect]
     Active Substance: FINASTERIDE
     Indication: ALOPECIA
     Dosage: 1 MG, QD
     Route: 048
     Dates: start: 20090225, end: 201107

REACTIONS (21)
  - Social phobia [Not Recovered/Not Resolved]
  - Hypoglycaemia [Unknown]
  - Ejaculation delayed [Not Recovered/Not Resolved]
  - Libido decreased [Not Recovered/Not Resolved]
  - Hyperhidrosis [Unknown]
  - Hypogonadism [Unknown]
  - Panic attack [Unknown]
  - Cognitive disorder [Not Recovered/Not Resolved]
  - Insomnia [Unknown]
  - Fatigue [Not Recovered/Not Resolved]
  - Melanocytic naevus [Unknown]
  - Feeling abnormal [Not Recovered/Not Resolved]
  - Attention deficit/hyperactivity disorder [Unknown]
  - Anxiety disorder [Not Recovered/Not Resolved]
  - Obsessive-compulsive disorder [Not Recovered/Not Resolved]
  - Abdominal rigidity [Unknown]
  - Depression [Not Recovered/Not Resolved]
  - Erectile dysfunction [Not Recovered/Not Resolved]
  - Ejaculation failure [Not Recovered/Not Resolved]
  - Sexual dysfunction [Not Recovered/Not Resolved]
  - Paranoia [Unknown]

NARRATIVE: CASE EVENT DATE: 200907
